FAERS Safety Report 4976485-9 (Version None)
Quarter: 2006Q2

REPORT INFORMATION
  Report Type: 
  Country: None (occurrence: None)
  Receive Date: 20060412
  Receipt Date: 20060329
  Transmission Date: 20061013
  Serious: Yes (Other)
  Sender: FDA-Public Use
  Company Number: HQWYE326814MAR06

PATIENT
  Age: 33 Year
  Sex: Female

DRUGS (2)
  1. LEVONORGESTREL AND ETHINYL ESTRADIOL [Suspect]
     Indication: ORAL CONTRACEPTION
     Dosage: 1 TABLET 1X PER 1 DAY
     Route: 048
  2. YASMIN [Suspect]
     Indication: ORAL CONTRACEPTION

REACTIONS (4)
  - DRUG INEFFECTIVE [None]
  - ECTOPIC PREGNANCY [None]
  - MYOCARDIAL INFARCTION [None]
  - UNINTENDED PREGNANCY [None]
